FAERS Safety Report 9865969 (Version 1)
Quarter: 2014Q1

REPORT INFORMATION
  Report Type: Spontaneous
  Country: US (occurrence: US)
  Receive Date: 20140203
  Receipt Date: 20140203
  Transmission Date: 20141002
  Serious: No
  Sender: FDA-Public Use
  Company Number: US-ALLERGAN-1313488US

PATIENT
  Sex: Female

DRUGS (3)
  1. RESTASIS [Suspect]
     Indication: PREOPERATIVE CARE
     Dosage: 2 GTT, BID
     Route: 047
  2. NAPHCON A [Concomitant]
     Indication: HYPERSENSITIVITY
     Dosage: 2 GTT, QD
     Route: 047
  3. CLONAZEPAM [Concomitant]
     Indication: INSOMNIA
     Dosage: UNK UNK, QHS
     Route: 048

REACTIONS (3)
  - Abnormal sensation in eye [Unknown]
  - Eye irritation [Unknown]
  - Drug ineffective [Unknown]
